FAERS Safety Report 7162629-X (Version None)
Quarter: 2010Q4

REPORT INFORMATION
  Report Type: 
  Country: None (occurrence: None)
  Receive Date: 20101215
  Receipt Date: 20091203
  Transmission Date: 20110411
  Serious: Yes (Other)
  Sender: FDA-Public Use
  Company Number: FR-PFIZER INC-2009308353

PATIENT
  Age: 24 Year
  Sex: Female
  Weight: 68 kg

DRUGS (3)
  1. LYRICA [Suspect]
     Indication: PAIN
     Dosage: 100 + 50 MG IN 2 INTAKES
     Route: 048
     Dates: start: 20080929, end: 20090216
  2. DOLIPRANE [Suspect]
  3. RIVOTRIL [Suspect]

REACTIONS (1)
  - STILLBIRTH [None]
